FAERS Safety Report 5536295-0 (Version None)
Quarter: 2007Q4

REPORT INFORMATION
  Report Type: 
  Country: None (occurrence: None)
  Receive Date: 20071206
  Receipt Date: 20071204
  Transmission Date: 20080405
  Serious: No
  Sender: FDA-Public Use
  Company Number: US-BOEHRINGER INGELHEIM PHARMACEUTICALS, INC.-2007-BP-25638BP

PATIENT
  Sex: Female

DRUGS (6)
  1. SPIRIVA [Suspect]
     Indication: EMPHYSEMA
     Dates: start: 20060101
  2. SPIRIVA [Suspect]
     Indication: BRONCHITIS CHRONIC
  3. ATROVENT HFA [Concomitant]
  4. COMBIVENT [Concomitant]
  5. ADVAIR DISKUS 100/50 [Concomitant]
  6. ALBUTEROL SULFATE [Concomitant]

REACTIONS (1)
  - THERAPEUTIC REACTION TIME DECREASED [None]
